FAERS Safety Report 7274313-2 (Version None)
Quarter: 2011Q1

REPORT INFORMATION
  Report Type: 
  Country: None (occurrence: None)
  Receive Date: 20110131
  Receipt Date: 20110131
  Transmission Date: 20110831
  Serious: Yes (Other)
  Sender: FDA-Public Use
  Company Number: None

PATIENT
  Age: 18 Year
  Sex: Female
  Weight: 59.8748 kg

DRUGS (1)
  1. REBIF [Suspect]
     Indication: MULTIPLE SCLEROSIS
     Dosage: 44 MCG/0.5 ML 3 X PER WEEK SQ CONTINUOUS
     Route: 058
     Dates: start: 20101015, end: 20110129

REACTIONS (5)
  - INFLUENZA LIKE ILLNESS [None]
  - VIRAL INFECTION [None]
  - PYREXIA [None]
  - PRODUCT QUALITY ISSUE [None]
  - MALAISE [None]
